FAERS Safety Report 10708041 (Version 7)
Quarter: 2016Q1

REPORT INFORMATION
  Report Type: Spontaneous
  Country: US (occurrence: US)
  Receive Date: 20150113
  Receipt Date: 20160226
  Transmission Date: 20160525
  Serious: No
  Sender: FDA-Public Use
  Company Number: US-PFIZER INC-2015010312

PATIENT
  Age: 85 Year
  Sex: Female

DRUGS (7)
  1. WARFARIN [Concomitant]
     Active Substance: WARFARIN
     Dosage: UNK, TAKEN AT MORNING MEAL
  2. CELEBREX [Suspect]
     Active Substance: CELECOXIB
     Indication: ARTHRITIS
  3. BYSTOLIC [Concomitant]
     Active Substance: NEBIVOLOL HYDROCHLORIDE
     Dosage: UNK, TAKEN AT MORNING MEAL
  4. CELEBREX [Suspect]
     Active Substance: CELECOXIB
     Indication: ARTHRALGIA
     Dosage: 20 MG, 1X/DAY, WITH EVENING MEAL
     Dates: start: 201502
  5. CELEBREX [Suspect]
     Active Substance: CELECOXIB
     Indication: PAIN
  6. NEXIUM [Concomitant]
     Active Substance: ESOMEPRAZOLE MAGNESIUM
     Dosage: UNK, TAKEN AT MORNING MEAL
  7. LEVOXYL [Concomitant]
     Active Substance: LEVOTHYROXINE SODIUM
     Dosage: UNK, TAKEN AT MORNING MEAL

REACTIONS (5)
  - Foot fracture [Recovered/Resolved]
  - Nausea [Recovered/Resolved]
  - Drug effect incomplete [Recovered/Resolved]
  - Pain [Recovered/Resolved]
  - Accident at home [Unknown]

NARRATIVE: CASE EVENT DATE: 201502
